FAERS Safety Report 10310293 (Version 3)
Quarter: 2014Q4

REPORT INFORMATION
  Report Type: Spontaneous
  Country: US (occurrence: US)
  Receive Date: 20140717
  Receipt Date: 20141008
  Transmission Date: 20150528
  Serious: No
  Sender: FDA-Public Use
  Company Number: US-PFIZER INC-2014196091

PATIENT
  Age: 50 Year
  Sex: Female

DRUGS (2)
  1. XALKORI [Suspect]
     Active Substance: CRIZOTINIB
     Indication: LUNG NEOPLASM MALIGNANT
     Dosage: 250 MG, 2X/DAY
     Dates: start: 20140619
  2. XALKORI [Suspect]
     Active Substance: CRIZOTINIB
     Dosage: UNK %, 2X/DAY

REACTIONS (10)
  - Thyroid function test abnormal [Unknown]
  - Pain [Unknown]
  - Anxiety [Unknown]
  - Gastrointestinal disorder [Recovered/Resolved]
  - Cough [Unknown]
  - Vomiting [Unknown]
  - Insomnia [Unknown]
  - Dysphonia [Unknown]
  - Visual impairment [Recovered/Resolved]
  - Diarrhoea [Unknown]
